FAERS Safety Report 8966154 (Version 1)
Quarter: 2012Q4

REPORT INFORMATION
  Report Type: 
  Country: GB (occurrence: GB)
  Receive Date: 20121214
  Receipt Date: 20121214
  Transmission Date: 20130627
  Serious: Yes (Disabling)
  Sender: FDA-Public Use
  Company Number: GB-TEVA-375329ISR

PATIENT
  Sex: Female

DRUGS (12)
  1. PREDNISOLONE [Suspect]
     Indication: LOWER RESPIRATORY TRACT INFECTION
     Route: 048
  2. AMOXICILLIN [Interacting]
     Indication: LOWER RESPIRATORY TRACT INFECTION
     Route: 048
  3. ZANTAC [Interacting]
     Dosage: At night
  4. OLMESARTAN MEDOXOMIL [Concomitant]
  5. TIOTROPIUM BROMIDE [Concomitant]
  6. CARBOCISTEINE [Concomitant]
  7. SALBUTAMOL [Concomitant]
     Route: 055
  8. SALBUTAMOL [Concomitant]
     Route: 055
  9. BUDESONIDE AND FORMOTEROL FUMARATE [Concomitant]
  10. TILADE [Concomitant]
  11. CETIRIZINE [Concomitant]
  12. UNIVER [Concomitant]

REACTIONS (5)
  - Gastrooesophageal reflux disease [Not Recovered/Not Resolved]
  - Dyspepsia [Not Recovered/Not Resolved]
  - Flatulence [Not Recovered/Not Resolved]
  - Dyspepsia [Unknown]
  - Drug interaction [Unknown]
